FAERS Safety Report 5997339-5 (Version None)
Quarter: 2008Q4

REPORT INFORMATION
  Report Type: 
  Country: None (occurrence: None)
  Receive Date: 20081212
  Receipt Date: 20081110
  Transmission Date: 20090506
  Serious: No
  Sender: FDA-Public Use
  Company Number: US-ABBOTT-08P-163-0487056-00

PATIENT
  Sex: Female
  Weight: 67.646 kg

DRUGS (12)
  1. HUMIRA [Suspect]
     Indication: RHEUMATOID ARTHRITIS
     Route: 058
     Dates: start: 20070801
  2. FLAXSEED [Suspect]
     Indication: MEDICAL DIET
     Route: 048
     Dates: end: 20081108
  3. LEFLUNOMIDE [Concomitant]
     Indication: RHEUMATOID ARTHRITIS
     Route: 048
     Dates: start: 20070901
  4. PREDNISONE TAB [Concomitant]
     Indication: RHEUMATOID ARTHRITIS
     Route: 048
     Dates: start: 20050101
  5. MONTELUKAST SODIUM [Concomitant]
     Indication: ASTHMA
     Route: 048
     Dates: start: 20030101
  6. SERTRALINE [Concomitant]
     Indication: DEPRESSION
     Route: 048
     Dates: start: 19980101
  7. SERTRALINE [Concomitant]
     Indication: ANXIETY
  8. TOLTERODINE [Concomitant]
     Indication: URINARY INCONTINENCE
     Route: 048
     Dates: start: 20070101
  9. LEVOTHYROXINE SODIUM [Concomitant]
     Indication: HYPOTHYROIDISM
     Route: 048
     Dates: start: 19930101
  10. BUDESONIDE [Concomitant]
     Indication: SINUSITIS
     Route: 045
     Dates: start: 20080901
  11. FISH OIL [Concomitant]
     Indication: MEDICAL DIET
     Route: 048
  12. FISH OIL [Concomitant]
     Indication: PAIN

REACTIONS (8)
  - BLOOD CHOLESTEROL INCREASED [None]
  - DIABETES MELLITUS [None]
  - DIABETIC NEUROPATHY [None]
  - HERPES ZOSTER [None]
  - HYPERTENSION [None]
  - IRRITABLE BOWEL SYNDROME [None]
  - PNEUMONIA [None]
  - WEIGHT DECREASED [None]
